FAERS Safety Report 25340744 (Version 2)
Quarter: 2025Q2

REPORT INFORMATION
  Report Type: Spontaneous
  Country: XI (occurrence: XI)
  Receive Date: 20250521
  Receipt Date: 20250604
  Transmission Date: 20250716
  Serious: Yes (Hospitalization, Other)
  Sender: AUROBINDO
  Company Number: XI-MLMSERVICE-20250502-PI493958-00270-4

PATIENT
  Age: 88 Year
  Sex: Female

DRUGS (1)
  1. PREDNISOLONE [Suspect]
     Active Substance: PREDNISOLONE
     Indication: Mucous membrane pemphigoid
     Route: 065

REACTIONS (1)
  - Acute psychosis [Unknown]
